FAERS Safety Report 17709377 (Version 2)
Quarter: 2020Q2

REPORT INFORMATION
  Report Type: Spontaneous
  Country: IT (occurrence: IT)
  Receive Date: 20200427
  Receipt Date: 20200502
  Transmission Date: 20200714
  Serious: Yes (Other)
  Sender: FDA-Public Use
  Company Number: BE-AUROBINDO-AUR-APL-2020-019958

PATIENT
  Age: 50 Year
  Sex: Male

DRUGS (1)
  1. ENTECAVIR. [Suspect]
     Active Substance: ENTECAVIR
     Indication: HEPATITIS
     Dosage: UNK
     Route: 065

REACTIONS (5)
  - Hypocalciuria [Unknown]
  - Gitelman^s syndrome [Unknown]
  - Asthenia [Unknown]
  - Alkalosis hypokalaemic [Unknown]
  - Hypokalaemia [Unknown]
